FAERS Safety Report 15656810 (Version 2)
Quarter: 2019Q3

REPORT INFORMATION
  Report Type: Report from Study
  Country: AU (occurrence: AU)
  Receive Date: 20181126
  Receipt Date: 20190906
  Transmission Date: 20191004
  Serious: Yes (Death, Life-Threatening, Hospitalization, Other)
  Sender: FDA-Public Use
  Company Number: AU-GILEAD-2018-0375889

PATIENT
  Age: 63 Year
  Sex: Male

DRUGS (4)
  1. SPIRONOLACTONE. [Concomitant]
     Active Substance: SPIRONOLACTONE
     Indication: HEPATIC FAILURE
     Dosage: UNK
     Route: 065
     Dates: start: 20181101, end: 20181102
  2. FRUSEMIDE ALMUS [Concomitant]
     Indication: HEPATIC FAILURE
     Dosage: UNK
     Route: 065
     Dates: start: 20181101, end: 20181102
  3. SOFOSBUVIR W/VELPATASVIR/VOXILAPREVIR [Suspect]
     Active Substance: SOFOSBUVIR\VELPATASVIR\VOXILAPREVIR
     Indication: CHRONIC HEPATITIS C
     Dosage: 1 DF, QD
     Route: 048
     Dates: start: 20180829, end: 20181102
  4. LACTULOSE. [Concomitant]
     Active Substance: LACTULOSE
     Indication: HEPATIC FAILURE
     Dosage: UNK
     Route: 065
     Dates: start: 20181101, end: 20181102

REACTIONS (3)
  - Bleeding varicose vein [Recovered/Resolved]
  - Acute hepatic failure [Fatal]
  - Gastrointestinal haemorrhage [Fatal]

NARRATIVE: CASE EVENT DATE: 20181021
